FAERS Safety Report 8032927-6 (Version None)
Quarter: 2012Q1

REPORT INFORMATION
  Report Type: 
  Country: None (occurrence: None)
  Receive Date: 20120110
  Receipt Date: 20120104
  Transmission Date: 20120608
  Serious: Yes (Hospitalization)
  Sender: FDA-Public Use
  Company Number: DK-PFIZER INC-2012004166

PATIENT
  Age: 71 Year
  Sex: Male
  Weight: 112 kg

DRUGS (1)
  1. SUNITINIB MALATE [Suspect]
     Indication: METASTATIC RENAL CELL CARCINOMA
     Dosage: 50 MG, 1X/DAY IN 28 DAYS THEN PAUSE IN 14 DAYS
     Dates: start: 20100319, end: 20100415

REACTIONS (2)
  - DEHYDRATION [None]
  - PNEUMONIA [None]
